FAERS Safety Report 6739051-0 (Version None)
Quarter: 2010Q2

REPORT INFORMATION
  Report Type: 
  Country: None (occurrence: None)
  Receive Date: 20100524
  Receipt Date: 20100524
  Transmission Date: 20101027
  Serious: Yes (Other)
  Sender: FDA-Public Use
  Company Number: None

PATIENT
  Age: 27 Year
  Sex: Female
  Weight: 56.6996 kg

DRUGS (2)
  1. NASONEX [Suspect]
     Indication: MULTIPLE ALLERGIES
     Dosage: TWO SPRAYS PER NOSTRIL ONCE DAILY NASAL
     Route: 045
     Dates: start: 20100515, end: 20100516
  2. NASONEX [Suspect]
     Indication: SINUS DISORDER
     Dosage: TWO SPRAYS PER NOSTRIL ONCE DAILY NASAL
     Route: 045
     Dates: start: 20100515, end: 20100516

REACTIONS (4)
  - DYSPNOEA [None]
  - HYPOAESTHESIA [None]
  - THROAT TIGHTNESS [None]
  - VOMITING [None]
